FAERS Safety Report 18415717 (Version 1)
Quarter: 2020Q4

REPORT INFORMATION
  Report Type: Spontaneous
  Country: US (occurrence: US)
  Receive Date: 20201022
  Receipt Date: 20201022
  Transmission Date: 20210114
  Serious: Yes (Other)
  Sender: FDA-Public Use
  Company Number: US-PFIZER INC-2020407854

PATIENT
  Age: 70 Year
  Sex: Male
  Weight: 86.18 kg

DRUGS (8)
  1. CARVEDILOL. [Concomitant]
     Active Substance: CARVEDILOL
     Indication: HYPERTENSION
     Dosage: 25 MG, 2X/DAY
  2. DIGOXIN. [Concomitant]
     Active Substance: DIGOXIN
     Indication: CARDIAC DISORDER
     Dosage: 125 UG, 1X/DAY
  3. INSPRA [Suspect]
     Active Substance: EPLERENONE
     Indication: CARDIAC DISCOMFORT
     Dosage: 50MG TABLET ONE A DAY BY MOUTH
     Route: 048
  4. INSPRA [Suspect]
     Active Substance: EPLERENONE
     Indication: BLOOD PRESSURE ABNORMAL
  5. FUROSEMIDE. [Concomitant]
     Active Substance: FUROSEMIDE
     Indication: CARDIAC FAILURE CONGESTIVE
  6. LOSARTAN POTASSIUM. [Concomitant]
     Active Substance: LOSARTAN POTASSIUM
     Indication: HYPERTENSION
     Dosage: 25 MG, 1X/DAY
  7. FUROSEMIDE. [Concomitant]
     Active Substance: FUROSEMIDE
     Indication: OEDEMA
     Dosage: 40 MG, 2X/DAY
  8. KLOR-CON [Concomitant]
     Active Substance: POTASSIUM CHLORIDE
     Indication: MINERAL SUPPLEMENTATION
     Dosage: 20 MEQ, 2X/DAY

REACTIONS (4)
  - Product dose omission issue [Not Recovered/Not Resolved]
  - Fluid retention [Unknown]
  - Cardiac disorder [Unknown]
  - Weight abnormal [Unknown]

NARRATIVE: CASE EVENT DATE: 2020
